FAERS Safety Report 14303638 (Version 1)
Quarter: 2017Q4

REPORT INFORMATION
  Report Type: Spontaneous
  Country: ES (occurrence: ES)
  Receive Date: 20171219
  Receipt Date: 20171219
  Transmission Date: 20180321
  Serious: Yes (Hospitalization)
  Sender: FDA-Public Use
  Company Number: ES-OTSUKA-21009261

PATIENT
  Age: 9 Year
  Sex: Female

DRUGS (3)
  1. ABILIFY [Suspect]
     Active Substance: ARIPIPRAZOLE
     Indication: MANIA
     Dosage: DOSE REDUCED TO 5 MG,3ML,0.5MG,ONCE DAILY
     Route: 065
  2. CLONAZEPAM. [Concomitant]
     Active Substance: CLONAZEPAM
     Indication: MANIA
     Dosage: DECREASED FROM 10 DROPS TO 5 DROPS
     Route: 065
  3. PREDNISONE. [Concomitant]
     Active Substance: PREDNISONE
     Indication: CROHN^S DISEASE
     Dosage: AT BREAK FAST
     Route: 065

REACTIONS (6)
  - Dizziness [Unknown]
  - Somnolence [Unknown]
  - Tremor [Unknown]
  - Parkinsonism [Unknown]
  - Off label use [Unknown]
  - Salivary hypersecretion [Unknown]
